FAERS Safety Report 4687693-9 (Version None)
Quarter: 2005Q2

REPORT INFORMATION
  Report Type: 
  Country: None (occurrence: None)
  Receive Date: 20050610
  Receipt Date: 20050531
  Transmission Date: 20051028
  Serious: Yes (Hospitalization)
  Sender: FDA-Public Use
  Company Number: 200511847FR

PATIENT
  Age: 87 Year
  Sex: Female

DRUGS (8)
  1. LASILIX FAIBLE [Suspect]
     Indication: LEFT VENTRICULAR FAILURE
     Route: 048
     Dates: start: 20041116, end: 20050222
  2. DIGOXINE NATIVELLE [Suspect]
     Indication: ATRIAL FIBRILLATION
     Route: 048
     Dates: start: 20041116, end: 20050222
  3. DIGOXINE NATIVELLE [Suspect]
     Indication: ATRIAL FLUTTER
     Route: 048
     Dates: start: 20041116, end: 20050222
  4. NEXIUM [Suspect]
     Indication: PROPHYLAXIS
     Route: 048
     Dates: start: 20041116, end: 20050222
  5. SINTROM [Concomitant]
     Indication: PROPHYLAXIS
     Route: 048
     Dates: start: 20041116, end: 20050222
  6. DIAMICRON [Concomitant]
     Indication: DIABETES MELLITUS NON-INSULIN-DEPENDENT
     Route: 048
     Dates: start: 20041116, end: 20050222
  7. GLUCOPHAGE [Concomitant]
     Indication: DIABETES MELLITUS NON-INSULIN-DEPENDENT
     Route: 048
     Dates: start: 20041116, end: 20050222
  8. NORSET [Concomitant]
     Route: 048
     Dates: start: 20041116, end: 20050222

REACTIONS (5)
  - CARDIOACTIVE DRUG LEVEL INCREASED [None]
  - DRUG INTERACTION [None]
  - GENERAL PHYSICAL HEALTH DETERIORATION [None]
  - OVERDOSE [None]
  - VOMITING [None]
